FAERS Safety Report 7435472-1 (Version None)
Quarter: 2011Q2

REPORT INFORMATION
  Report Type: 
  Country: None (occurrence: None)
  Receive Date: 20110425
  Receipt Date: 20110419
  Transmission Date: 20111010
  Serious: Yes (Death)
  Sender: FDA-Public Use
  Company Number: US-ASTRAZENECA-2011SE11029

PATIENT
  Sex: Female

DRUGS (9)
  1. SEROQUEL [Suspect]
     Route: 048
     Dates: start: 20100201
  2. CLORAZEPATE DIPOTASSIUM [Concomitant]
  3. SEROQUEL [Suspect]
     Route: 048
     Dates: start: 20080401
  4. ESTRIADOL [Concomitant]
  5. NORCO [Concomitant]
  6. SOMA [Concomitant]
  7. AMBIEN [Concomitant]
  8. PROVENTIL [Concomitant]
  9. PAXIL [Concomitant]

REACTIONS (2)
  - CHRONIC OBSTRUCTIVE PULMONARY DISEASE [None]
  - CARDIOMYOPATHY [None]
